FAERS Safety Report 4394509-7 (Version None)
Quarter: 2004Q3

REPORT INFORMATION
  Report Type: 
  Country: None (occurrence: None)
  Receive Date: 20040706
  Receipt Date: 20040622
  Transmission Date: 20050211
  Serious: Yes (Death)
  Sender: FDA-Public Use
  Company Number: K200400954

PATIENT
  Age: 41 Year
  Sex: Female
  Weight: 77.6 kg

DRUGS (6)
  1. SKELAXIN(METAXALONE) TABLET, 800MG [Suspect]
     Indication: PAIN
     Dosage: 800 MG, QID, ORAL
     Route: 048
     Dates: start: 20040101, end: 20040601
  2. LEXAPRO [Concomitant]
  3. IMITREX    CERENEX (SUMATRIPTAN SUCCINATE) [Concomitant]
  4. MOTRIN [Concomitant]
  5. CLONAZEPAM [Concomitant]
  6. DURAGESIC [Concomitant]

REACTIONS (2)
  - COMPLETED SUICIDE [None]
  - OVERDOSE [None]
